FAERS Safety Report 4586369-6 (Version None)
Quarter: 2005Q1

REPORT INFORMATION
  Report Type: 
  Country: None (occurrence: None)
  Receive Date: 20050125
  Receipt Date: 20041118
  Transmission Date: 20050727
  Serious: No
  Sender: FDA-Public Use
  Company Number: USA040977489

PATIENT
  Age: 77 Year
  Sex: Female
  Weight: 45 kg

DRUGS (5)
  1. FORTEO [Suspect]
     Indication: OSTEOPOROSIS
  2. EVISTA [Suspect]
     Indication: OSTEOPOROSIS
     Dosage: 60 MG/ 1 DAY
     Dates: start: 20020101
  3. CELEBREX [Concomitant]
  4. ASPIRIN [Concomitant]
  5. PERIACTIN [Concomitant]

REACTIONS (4)
  - CONSTIPATION [None]
  - DIARRHOEA [None]
  - NAUSEA [None]
  - RECTAL HAEMORRHAGE [None]
